FAERS Safety Report 5141523-X (Version None)
Quarter: 2006Q4

REPORT INFORMATION
  Report Type: 
  Country: None (occurrence: None)
  Receive Date: 20061030
  Receipt Date: 20061030
  Transmission Date: 20070319
  Serious: No
  Sender: FDA-Public Use
  Company Number: None

PATIENT
  Age: 19 Year
  Sex: Male
  Weight: 72.5755 kg

DRUGS (4)
  1. ALLOPURINOL [Suspect]
     Indication: BLOOD URIC ACID INCREASED
     Dosage: 300 MG ONCE A DAY
     Dates: start: 20060920, end: 20061028
  2. ALLOPURINOL [Suspect]
     Indication: GOUT
     Dosage: 300 MG ONCE A DAY
     Dates: start: 20060920, end: 20061028
  3. ALLOPURINOL [Suspect]
     Indication: NEPHROLITHIASIS
     Dosage: 300 MG ONCE A DAY
     Dates: start: 20060920, end: 20061028
  4. COLCHICINE 0.6MG CVS PHARMACY [Suspect]
     Indication: GOUT
     Dosage: 0.6MG ONCE A DAY
     Dates: start: 20060912, end: 20061028

REACTIONS (2)
  - SKIN DISCOLOURATION [None]
  - SKIN STRIAE [None]
